FAERS Safety Report 6649381-9 (Version None)
Quarter: 2010Q1

REPORT INFORMATION
  Report Type: 
  Country: None (occurrence: None)
  Receive Date: 20100324
  Receipt Date: 20100315
  Transmission Date: 20100710
  Serious: Yes (Other)
  Sender: FDA-Public Use
  Company Number: BR-PFIZER INC-2010021356

PATIENT
  Age: 60 Year
  Sex: Female
  Weight: 62 kg

DRUGS (12)
  1. CHAMPIX [Suspect]
     Indication: SMOKING CESSATION THERAPY
     Dosage: 1 MG, EVERY 12 HOURS
     Route: 048
     Dates: start: 20100124
  2. CHAMPIX [Suspect]
     Indication: NICOTINE DEPENDENCE
  3. CHAMPIX [Suspect]
     Indication: TOBACCO USER
  4. LEXOTAN [Concomitant]
     Indication: SEDATION
     Dosage: UNK
     Dates: start: 20060101
  5. NEXIUM [Concomitant]
     Indication: REFLUX GASTRITIS
     Dosage: UNK
  6. NEXIUM [Concomitant]
     Indication: INTESTINAL FUNCTIONAL DISORDER
  7. NEXIUM [Concomitant]
     Indication: ABDOMINAL DISCOMFORT
  8. TRIMEBUTINE MALEATE [Concomitant]
     Indication: REFLUX GASTRITIS
     Dosage: UNK
  9. TRIMEBUTINE MALEATE [Concomitant]
     Indication: INTESTINAL FUNCTIONAL DISORDER
  10. MONOCORDIL [Concomitant]
     Indication: CORONARY ARTERY DISEASE
     Dosage: UNK
     Dates: start: 20060101
  11. ASPIRIN [Concomitant]
     Indication: COAGULOPATHY
     Dosage: UNK
     Dates: start: 20060101
  12. SIMVASTATIN [Concomitant]
     Indication: HYPERTENSION
     Dosage: UNK
     Dates: start: 20060101

REACTIONS (17)
  - ABDOMINAL PAIN UPPER [None]
  - ANORECTAL DISORDER [None]
  - ANXIETY [None]
  - FLATULENCE [None]
  - FOOD CRAVING [None]
  - GASTROOESOPHAGEAL REFLUX DISEASE [None]
  - HEADACHE [None]
  - HIATUS HERNIA [None]
  - HYPERSENSITIVITY [None]
  - INSOMNIA [None]
  - IRRITABLE BOWEL SYNDROME [None]
  - OROPHARYNGEAL PAIN [None]
  - SINUSITIS [None]
  - ULCER [None]
  - URINE ODOUR ABNORMAL [None]
  - VULVOVAGINAL BURNING SENSATION [None]
  - WEIGHT INCREASED [None]
